FAERS Safety Report 22181283 (Version 1)
Quarter: 2023Q2

REPORT INFORMATION
  Report Type: Spontaneous
  Country: FR (occurrence: FR)
  Receive Date: 20230406
  Receipt Date: 20230406
  Transmission Date: 20230722
  Serious: Yes (Other)
  Sender: FDA-Public Use
  Company Number: None

PATIENT
  Age: 73 Year
  Sex: Male
  Weight: 85 kg

DRUGS (21)
  1. LEVOFLOXACIN [Suspect]
     Active Substance: LEVOFLOXACIN
     Indication: Endophthalmitis
     Dosage: 2 DF, QD
     Route: 048
     Dates: start: 20220225, end: 20220305
  2. ATROVENT [Suspect]
     Active Substance: IPRATROPIUM BROMIDE
     Indication: Product used for unknown indication
     Dosage: 3 DF, QD
     Route: 055
     Dates: start: 20220217, end: 20220304
  3. PYRIDOXINE HYDROCHLORIDE [Suspect]
     Active Substance: PYRIDOXINE HYDROCHLORIDE
     Indication: Anaemia vitamin B6 deficiency
     Dosage: 500 MG, QD
     Route: 042
     Dates: start: 20220217, end: 20220308
  4. TERBUTALINE SULFATE [Suspect]
     Active Substance: TERBUTALINE SULFATE
     Indication: Product used for unknown indication
     Dosage: SOLUTION FOR INHALATION BY NEBULISER IN A SINGLE-DOSE CONTAINER
     Route: 055
     Dates: start: 20220211, end: 20220304
  5. THIAMINE HYDROCHLORIDE [Suspect]
     Active Substance: THIAMINE HYDROCHLORIDE
     Indication: Hypovitaminosis
     Dosage: 1000 MG, QD
     Route: 042
     Dates: start: 20220217, end: 20220308
  6. LOVENOX [Suspect]
     Active Substance: ENOXAPARIN SODIUM
     Indication: Deep vein thrombosis
     Dosage: 2 DF, QD
     Route: 058
     Dates: start: 20220217, end: 20220305
  7. PIPERACILLIN SODIUM\TAZOBACTAM SODIUM [Suspect]
     Active Substance: PIPERACILLIN SODIUM\TAZOBACTAM SODIUM
     Indication: Endophthalmitis
     Dosage: 3 DF, QD
     Route: 042
     Dates: start: 20220225, end: 20220301
  8. REFRESH CELLUVISC [Concomitant]
     Active Substance: CARBOXYMETHYLCELLULOSE SODIUM
  9. TROPICAMIDE [Concomitant]
     Active Substance: TROPICAMIDE
  10. PERINDOPRIL [Concomitant]
     Active Substance: PERINDOPRIL
  11. FOLIC ACID [Concomitant]
     Active Substance: FOLIC ACID
  12. PANTOPRAZOLE [Concomitant]
     Active Substance: PANTOPRAZOLE
  13. FUROSEMIDE [Concomitant]
     Active Substance: FUROSEMIDE
     Dosage: UNK
  14. ATROPINE [Concomitant]
     Active Substance: ATROPINE
  15. ATORVASTATIN [Concomitant]
     Active Substance: ATORVASTATIN
  16. INSULIN GLARGINE [Concomitant]
     Active Substance: INSULIN GLARGINE
  17. RETINOL [Concomitant]
     Active Substance: RETINOL
     Dosage: UNK
  18. NOVORAPID [Concomitant]
     Active Substance: INSULIN ASPART
  19. CETIRIZINE [Concomitant]
     Active Substance: CETIRIZINE HYDROCHLORIDE
     Dosage: UNK
  20. AMLODIPINE [Concomitant]
     Active Substance: AMLODIPINE BESYLATE
     Dosage: UNK
  21. DEXAMETHASONE SODIUM PHOSPHATE\NEOMYCIN SULFATE [Concomitant]
     Active Substance: DEXAMETHASONE SODIUM PHOSPHATE\NEOMYCIN SULFATE
     Dosage: UNK

REACTIONS (2)
  - Rash maculo-papular [Recovered/Resolved]
  - Erythema [Recovering/Resolving]

NARRATIVE: CASE EVENT DATE: 20220228
